FAERS Safety Report 7328256-6 (Version None)
Quarter: 2011Q1

REPORT INFORMATION
  Report Type: 
  Country: None (occurrence: None)
  Receive Date: 20110303
  Receipt Date: 20110217
  Transmission Date: 20110831
  Serious: Yes (Other)
  Sender: FDA-Public Use
  Company Number: IN-RANBAXY-2011RR-41706

PATIENT
  Age: 20 Year
  Sex: Female

DRUGS (5)
  1. METFORMIN HYDROCHLORIDE [Suspect]
     Dosage: 500 MG, UNK
  2. RISPERDONE [Concomitant]
     Dosage: 3 MG, UNK
     Dates: start: 20080401
  3. RISPERDONE [Concomitant]
     Indication: SCHIZOPHRENIA
     Dosage: 3.5 MG, UNK
  4. METFORMIN HYDROCHLORIDE [Suspect]
     Indication: SCHIZOPHRENIA
     Dosage: 250 MG, UNK
     Dates: start: 20080501
  5. TRIHEXIPHENIDYL [Concomitant]
     Indication: SCHIZOPHRENIA
     Dosage: 2 MG, UNK

REACTIONS (1)
  - PSYCHOTIC DISORDER [None]
